FAERS Safety Report 7850000-4 (Version None)
Quarter: 2011Q4

REPORT INFORMATION
  Report Type: 
  Country: None (occurrence: None)
  Receive Date: 20111026
  Receipt Date: 20111019
  Transmission Date: 20120403
  Serious: Yes (Other)
  Sender: FDA-Public Use
  Company Number: JP-UCBSA-043336

PATIENT
  Age: 51 Year
  Sex: Female

DRUGS (8)
  1. PREDNISOLONE [Concomitant]
     Route: 048
  2. TOPIRAMATE [Concomitant]
     Route: 048
  3. AMLODIPINE [Concomitant]
     Route: 048
  4. RISEDRONATE SODIUM [Concomitant]
     Route: 048
  5. KEPPRA [Suspect]
     Route: 048
  6. NEORAL [Concomitant]
     Route: 048
  7. PROGRAF [Suspect]
  8. RABEPRAZOLE SODIUM [Concomitant]
     Route: 048

REACTIONS (2)
  - PROGRESSIVE MULTIFOCAL LEUKOENCEPHALOPATHY [None]
  - MEMORY IMPAIRMENT [None]
